FAERS Safety Report 9818160 (Version 2)
Quarter: 2014Q1

REPORT INFORMATION
  Report Type: Spontaneous
  Country: US (occurrence: US)
  Receive Date: 20140115
  Receipt Date: 20140306
  Transmission Date: 20141002
  Serious: No
  Sender: FDA-Public Use
  Company Number: US-009507513-1401USA005298

PATIENT
  Sex: Female

DRUGS (3)
  1. JANUVIA [Suspect]
     Indication: DIABETES MELLITUS
     Dosage: 50 MG, BID
     Route: 048
     Dates: start: 2013, end: 2013
  2. LANTUS [Concomitant]
     Indication: ANXIETY
     Dosage: UNK
  3. LANTUS [Concomitant]
     Indication: BLOOD CHOLESTEROL

REACTIONS (4)
  - Haemoglobin decreased [Recovered/Resolved]
  - Abdominal pain upper [Recovered/Resolved]
  - Back pain [Recovered/Resolved]
  - Diarrhoea [Recovered/Resolved]
